FAERS Safety Report 6945207-4 (Version None)
Quarter: 2010Q3

REPORT INFORMATION
  Report Type: 
  Country: None (occurrence: None)
  Receive Date: 20100827
  Receipt Date: 20100603
  Transmission Date: 20110219
  Serious: No
  Sender: FDA-Public Use
  Company Number: US-KINGPHARMUSA00001-K201000694

PATIENT
  Age: 75 Year
  Sex: Male
  Weight: 83.9 kg

DRUGS (14)
  1. FLECTOR [Suspect]
     Indication: NECK PAIN
     Dosage: .5 PATCH, Q12H
     Route: 061
     Dates: start: 20100101, end: 20100101
  2. FLECTOR [Suspect]
     Dosage: .5 PATCH, QAM
     Route: 061
     Dates: start: 20100101, end: 20100101
  3. FLECTOR [Suspect]
     Dosage: .5 PATCH, Q2-3 DAYS
     Route: 061
     Dates: start: 20100101, end: 20100602
  4. ASPIRIN [Concomitant]
     Dosage: 81 MG, UNK
     Route: 048
  5. NEXIUM [Concomitant]
     Dosage: 40 MG, UNK
     Route: 048
  6. LUNESTA [Concomitant]
     Dosage: 3 MG, UNK
     Route: 048
  7. ZOCOR [Concomitant]
     Dosage: 40 MG, UNK
     Route: 048
  8. CLONAZEPAM [Concomitant]
     Dosage: 0.5 MG, UNK
     Route: 048
  9. TOPROL-XL [Concomitant]
     Indication: HEART VALVE INCOMPETENCE
     Dosage: 100 MG, UNK
     Route: 048
  10. NEURONTIN [Concomitant]
     Dosage: 300 MG, TID
     Route: 048
  11. TRAMADOL ALPHARMA [Concomitant]
     Dosage: 50 MG, TID
     Route: 048
  12. ASCORBIC ACID [Concomitant]
     Dosage: 100 MG, UNK
     Route: 048
  13. MULTI-VITAMIN [Concomitant]
     Dosage: UNK
     Route: 048
  14. DECONGESTANT [Concomitant]
     Dosage: 600 MG, UNK
     Route: 048

REACTIONS (6)
  - APPLICATION SITE ERYTHEMA [None]
  - APPLICATION SITE EXFOLIATION [None]
  - APPLICATION SITE PAIN [None]
  - APPLICATION SITE RASH [None]
  - MEDICATION RESIDUE [None]
  - PAIN IN EXTREMITY [None]
